FAERS Safety Report 22216844 (Version 2)
Quarter: 2023Q2

REPORT INFORMATION
  Report Type: Report from Study
  Country: CA (occurrence: CA)
  Receive Date: 20230417
  Receipt Date: 20230602
  Transmission Date: 20230721
  Serious: Yes (Other)
  Sender: FDA-Public Use
  Company Number: CA-JNJFOC-20230413540

PATIENT
  Age: 50 Year
  Sex: Male
  Weight: 60.836 kg

DRUGS (2)
  1. REMICADE [Suspect]
     Active Substance: INFLIXIMAB
     Indication: Crohn^s disease
     Dosage: ON 11-APR-2023, THE PATIENT RECEIVED 40TH INFLIXIMAB INFUSION AT DOSE OF 800 MG AND PARTIAL HARVEY-B
     Route: 041
     Dates: start: 20180529
  2. REMICADE [Suspect]
     Active Substance: INFLIXIMAB
     Route: 041

REACTIONS (6)
  - Weight decreased [Not Recovered/Not Resolved]
  - Muscle spasms [Not Recovered/Not Resolved]
  - Abdominal pain [Not Recovered/Not Resolved]
  - COVID-19 [Recovered/Resolved]
  - Eating disorder [Unknown]
  - Constipation [Unknown]

NARRATIVE: CASE EVENT DATE: 20230322
